FAERS Safety Report 5169276-X (Version None)
Quarter: 2006Q4

REPORT INFORMATION
  Report Type: 
  Country: None (occurrence: None)
  Receive Date: 20061127
  Receipt Date: 20061117
  Transmission Date: 20070319
  Serious: Yes (Hospitalization)
  Sender: FDA-Public Use
  Company Number: DE-2006-036073

PATIENT
  Age: 46 Year
  Sex: Female

DRUGS (1)
  1. BETAFERON (INTERFERON BETA - 1B)INJECTION, 250?G [Suspect]
     Indication: DRUG USE FOR UNKNOWN INDICATION
     Dosage: SUBCUTANEOUS
     Route: 058
     Dates: start: 19960101

REACTIONS (4)
  - ABDOMINAL WALL DISORDER [None]
  - APPENDICITIS [None]
  - INDURATION [None]
  - INJECTION SITE ABSCESS [None]
